FAERS Safety Report 24936188 (Version 2)
Quarter: 2025Q1

REPORT INFORMATION
  Report Type: Spontaneous
  Country: AU (occurrence: AU)
  Receive Date: 20250206
  Receipt Date: 20250212
  Transmission Date: 20250408
  Serious: Yes (Other)
  Sender: IPSEN BIOPHARMACEUTICALS, INC.
  Company Number: AU-IPSEN Group, Research and Development-2025-02640

PATIENT

DRUGS (1)
  1. LANREOTIDE ACETATE [Suspect]
     Active Substance: LANREOTIDE ACETATE
     Indication: Metastatic carcinoid tumour
     Dates: start: 201301

REACTIONS (8)
  - Syncope [Unknown]
  - Injection site discomfort [Unknown]
  - Injection site pain [Unknown]
  - Injection site haemorrhage [Unknown]
  - Dizziness [Unknown]
  - Cold sweat [Unknown]
  - Vomiting [Unknown]
  - Adverse drug reaction [Unknown]
